FAERS Safety Report 10760914 (Version 2)
Quarter: 2015Q2

REPORT INFORMATION
  Report Type: Spontaneous
  Country: US (occurrence: None)
  Receive Date: 20150202
  Receipt Date: 20150407
  Transmission Date: 20150821
  Serious: Yes (Other)
  Sender: FDA-Public Use
  Company Number: 2015VER00038

PATIENT
  Age: 29 Year
  Sex: Female

DRUGS (2)
  1. UNSPECIFIED BIRTH CONTROL PILLS [Concomitant]
     Active Substance: UNSPECIFIED INGREDIENT
  2. MYORISAN [Suspect]
     Active Substance: ISOTRETINOIN
     Dates: start: 20140708, end: 20141127

REACTIONS (2)
  - Pregnancy test positive [None]
  - Maternal exposure before pregnancy [None]
